FAERS Safety Report 24679538 (Version 2)
Quarter: 2025Q2

REPORT INFORMATION
  Report Type: Spontaneous
  Country: FR (occurrence: FR)
  Receive Date: 20241129
  Receipt Date: 20250507
  Transmission Date: 20250716
  Serious: Yes (Hospitalization, Other)
  Sender: BRISTOL-MYERS SQUIBB COMPANY
  Company Number: None

PATIENT
  Age: 56 Year
  Sex: Male
  Weight: 106 kg

DRUGS (3)
  1. YERVOY [Suspect]
     Active Substance: IPILIMUMAB
     Indication: Renal cancer stage IV
     Route: 042
     Dates: start: 20240527, end: 20240930
  2. OPDIVO [Suspect]
     Active Substance: NIVOLUMAB
     Indication: Renal cancer stage IV
     Route: 042
     Dates: start: 20240527, end: 20240930
  3. OPDIVO [Suspect]
     Active Substance: NIVOLUMAB
     Route: 042
     Dates: start: 20241125, end: 20241125

REACTIONS (5)
  - Immune-mediated thyroiditis [Recovered/Resolved with Sequelae]
  - Diabetic metabolic decompensation [Recovering/Resolving]
  - Spinal pain [Recovered/Resolved]
  - Off label use [Unknown]
  - Interstitial lung disease [Not Recovered/Not Resolved]

NARRATIVE: CASE EVENT DATE: 20240617
